FAERS Safety Report 16691890 (Version 3)
Quarter: 2019Q3

REPORT INFORMATION
  Report Type: Spontaneous
  Country: PL (occurrence: PL)
  Receive Date: 20190812
  Receipt Date: 20190910
  Transmission Date: 20191004
  Serious: Yes (Hospitalization, Disabling, Other)
  Sender: FDA-Public Use
  Company Number: PL-ACCORD-137784

PATIENT
  Age: 56 Year
  Sex: Female

DRUGS (7)
  1. SERTRALINE [Suspect]
     Active Substance: SERTRALINE HYDROCHLORIDE
     Indication: DEPRESSION
     Dosage: IN THE MORNING
  2. CELECOXIB. [Interacting]
     Active Substance: CELECOXIB
     Indication: BACK PAIN
     Dosage: 400 MG, QD
  3. INDAPAMIDE. [Interacting]
     Active Substance: INDAPAMIDE
     Indication: HYPERTENSION
     Dosage: 1.5 MG, QD, SR
  4. ENALAPRIL [Interacting]
     Active Substance: ENALAPRIL
     Indication: HYPERTENSION
     Dosage: 20 MG, QD
  5. HYDROXYZINE [Interacting]
     Active Substance: HYDROXYZINE HYDROCHLORIDE
     Indication: INITIAL INSOMNIA
     Dosage: IN THE EVENING
  6. ENALAPRIL [Interacting]
     Active Substance: ENALAPRIL
     Indication: HYPERTENSION
     Dosage: 20 MG, QD
  7. OMEPRAZOLE. [Interacting]
     Active Substance: OMEPRAZOLE
     Indication: BACK PAIN

REACTIONS (5)
  - Burning mouth syndrome [Recovered/Resolved]
  - Pain [Recovered/Resolved]
  - Iron deficiency [Recovered/Resolved]
  - Dysphagia [Recovered/Resolved]
  - Drug interaction [Unknown]
